FAERS Safety Report 4430713-7 (Version None)
Quarter: 2004Q3

REPORT INFORMATION
  Report Type: 
  Country: None (occurrence: None)
  Receive Date: 20040818
  Receipt Date: 20040811
  Transmission Date: 20050211
  Serious: Yes (Death, Life-Threatening)
  Sender: FDA-Public Use
  Company Number: 2004CG01590

PATIENT
  Age: 62 Year
  Sex: Male

DRUGS (9)
  1. ZESTORETIC [Suspect]
     Dosage: 20 + 12.5 MG QD
     Dates: end: 20030812
  2. DIGOXIN [Suspect]
     Dosage: 1 DF QD PO
     Route: 048
     Dates: end: 20030812
  3. LIPANTHYL ^BRISTOL-MYERS SQUIBB^ [Suspect]
     Dosage: 1 DF QD PO
     Route: 048
     Dates: end: 20030812
  4. PREVISCAN [Suspect]
     Dosage: 1 DF QD PO
     Route: 048
     Dates: end: 20030812
  5. FLECAINE [Suspect]
     Dosage: 200 MG QD PO
     Route: 048
     Dates: end: 20030812
  6. CALDINE [Suspect]
     Dosage: 4 MG QD PO
     Route: 048
     Dates: end: 20030812
  7. DAONIL [Suspect]
     Dosage: 2.5 MG QD PO
     Route: 048
     Dates: end: 20030812
  8. METFORMIN HCL [Suspect]
     Dosage: 700 MG TID PO
     Route: 048
     Dates: end: 20030812
  9. TOCO [Suspect]
     Dosage: 500 MG QD PO
     Route: 048
     Dates: end: 20030812

REACTIONS (11)
  - CARDIO-RESPIRATORY ARREST [None]
  - CEREBRAL DISORDER [None]
  - CONFUSIONAL STATE [None]
  - DEHYDRATION [None]
  - HEPATOCELLULAR DAMAGE [None]
  - HYPERTHERMIA MALIGNANT [None]
  - MULTI-ORGAN FAILURE [None]
  - RENAL FAILURE [None]
  - RESPIRATORY DISTRESS [None]
  - RHABDOMYOLYSIS [None]
  - VENTRICULAR TACHYCARDIA [None]
